FAERS Safety Report 6832167-X (Version None)
Quarter: 2010Q3

REPORT INFORMATION
  Report Type: 
  Country: None (occurrence: None)
  Receive Date: 20100712
  Receipt Date: 20100628
  Transmission Date: 20110219
  Serious: Yes (Hospitalization)
  Sender: FDA-Public Use
  Company Number: PHHY2010US38034

PATIENT
  Sex: Male
  Weight: 60.78 kg

DRUGS (4)
  1. ERL 080A ERL+TAB [Suspect]
     Dosage: 1440 MG
     Route: 048
     Dates: start: 20100506
  2. TACROLIMUS [Concomitant]
     Indication: IMMUNOSUPPRESSION
     Dosage: 2 MG, BID
     Dates: start: 20100506
  3. PREDNISONE [Concomitant]
     Indication: IMMUNOSUPPRESSION
     Dosage: 5 MG, QD
     Dates: start: 20100506
  4. ANTIHYPERTENSIVES [Concomitant]
     Indication: HYPERTENSION

REACTIONS (18)
  - BLADDER DILATATION [None]
  - BLOOD CREATININE INCREASED [None]
  - BLOOD UREA INCREASED [None]
  - COMPLICATIONS OF TRANSPLANTED KIDNEY [None]
  - DEHYDRATION [None]
  - DEVICE RELATED INFECTION [None]
  - DIZZINESS [None]
  - DRUG LEVEL INCREASED [None]
  - DYSURIA [None]
  - ENTEROCOCCAL INFECTION [None]
  - GLOMERULONEPHRITIS ACUTE [None]
  - HYPOTENSION [None]
  - NAUSEA [None]
  - RENAL FAILURE [None]
  - URETERAL STENT REMOVAL [None]
  - UROSEPSIS [None]
  - VASCULAR CALCIFICATION [None]
  - VOMITING [None]
